FAERS Safety Report 6306847-9 (Version None)
Quarter: 2009Q3

REPORT INFORMATION
  Report Type: 
  Country: None (occurrence: None)
  Receive Date: 20090812
  Receipt Date: 20090731
  Transmission Date: 20100115
  Serious: Yes (Other)
  Sender: FDA-Public Use
  Company Number: US-PFIZER INC-2009228278

PATIENT
  Sex: Female
  Weight: 79.365 kg

DRUGS (2)
  1. CHANTIX [Suspect]
     Indication: SMOKING CESSATION THERAPY
     Dosage: UNK
     Dates: start: 20090424, end: 20090516
  2. CHANTIX [Suspect]
     Indication: NICOTINE DEPENDENCE

REACTIONS (2)
  - BLINDNESS TRANSIENT [None]
  - IMPAIRED DRIVING ABILITY [None]
